FAERS Safety Report 6346426-0 (Version None)
Quarter: 2009Q3

REPORT INFORMATION
  Report Type: 
  Country: None (occurrence: None)
  Receive Date: 20090909
  Receipt Date: 20090901
  Transmission Date: 20100115
  Serious: Yes (Hospitalization)
  Sender: FDA-Public Use
  Company Number: US-ASTRAZENECA-2009SE10864

PATIENT
  Age: 621 Month
  Sex: Male
  Weight: 93.9 kg

DRUGS (11)
  1. PRILOSEC [Suspect]
     Route: 048
     Dates: end: 20090101
  2. PLAVIX [Suspect]
     Indication: VASCULAR GRAFT
     Route: 048
     Dates: start: 20081024
  3. BUSPIRONE HCL [Concomitant]
  4. DICLOFENAC SODIUM [Concomitant]
  5. METFORMIN HCL [Concomitant]
  6. ROSUVASTATIN CALCIUM [Concomitant]
  7. LISINOPRIL [Concomitant]
  8. METOPROLOL [Concomitant]
  9. FISH OIL [Concomitant]
  10. PHENYTOIN SODIUM [Concomitant]
  11. MEDICATION FOR TRIGLYCERIDES [Concomitant]

REACTIONS (3)
  - CHEST PAIN [None]
  - CORONARY ARTERY OCCLUSION [None]
  - INCREASED TENDENCY TO BRUISE [None]
